FAERS Safety Report 11200959 (Version 1)
Quarter: 2015Q2

REPORT INFORMATION
  Report Type: Spontaneous
  Country: PL (occurrence: PL)
  Receive Date: 20150618
  Receipt Date: 20150618
  Transmission Date: 20150821
  Serious: Yes (Other)
  Sender: FDA-Public Use
  Company Number: PL-GILEAD-2015-0157684

PATIENT
  Age: 28 Year
  Sex: Male

DRUGS (3)
  1. VISTIDE [Suspect]
     Active Substance: CIDOFOVIR
     Indication: PAPILLOMA
     Dosage: UNK
     Route: 065
  2. ACETYLCYSTEINE. [Concomitant]
     Active Substance: ACETYLCYSTEINE
     Indication: PROPHYLAXIS
  3. VISTIDE [Suspect]
     Active Substance: CIDOFOVIR
     Dosage: UNK
     Route: 042

REACTIONS (3)
  - Drug ineffective [Unknown]
  - Off label use [Unknown]
  - Neoplasm progression [Unknown]
